FAERS Safety Report 20935358 (Version 1)
Quarter: 2022Q2

REPORT INFORMATION
  Report Type: Spontaneous
  Country: JP (occurrence: JP)
  Receive Date: 20220609
  Receipt Date: 20220609
  Transmission Date: 20220720
  Serious: Yes (Other)
  Sender: FDA-Public Use
  Company Number: JP-ASTELLAS-2019US051823

PATIENT
  Age: 34 Year

DRUGS (2)
  1. BENDAMUSTINE HYDROCHLORIDE [Suspect]
     Active Substance: BENDAMUSTINE HYDROCHLORIDE
     Indication: Product used for unknown indication
     Dosage: CYCLIC (6 CYCLES)
     Route: 042
  2. RITUXIMAB [Suspect]
     Active Substance: RITUXIMAB
     Indication: Product used for unknown indication
     Dosage: CYCLIC (6 CYCLES)
     Route: 041

REACTIONS (4)
  - Pneumonia mycoplasmal [Recovered/Resolved]
  - Tumour lysis syndrome [Unknown]
  - Nausea [Unknown]
  - White blood cell count decreased [Unknown]
